FAERS Safety Report 7170324-6 (Version None)
Quarter: 2010Q4

REPORT INFORMATION
  Report Type: 
  Country: None (occurrence: None)
  Receive Date: 20101217
  Receipt Date: 20101213
  Transmission Date: 20110411
  Serious: Yes (Other)
  Sender: FDA-Public Use
  Company Number: GB-NAPPMUNDI-GBR-2010-0007507

PATIENT
  Age: 49 Year
  Sex: Male
  Weight: 70 kg

DRUGS (5)
  1. BUTRANS [Suspect]
     Indication: NERVE INJURY
     Dosage: 20 MCG, Q1H
     Route: 062
     Dates: start: 20060101
  2. OXYCONTIN [Suspect]
     Indication: NEURALGIA
     Dosage: 10 MG, TID
     Route: 048
     Dates: start: 20100120
  3. OXYCONTIN [Suspect]
     Indication: NERVE INJURY
     Dosage: 20 MG, UNK
     Route: 048
     Dates: start: 20090707
  4. METFORMIN [Concomitant]
     Indication: TYPE 2 DIABETES MELLITUS
     Dosage: 500 MG, TID
     Route: 048
     Dates: start: 20080304
  5. SIMVASTATIN [Concomitant]
     Indication: DIABETES MELLITUS
     Dosage: 40 MG, DAILY
     Route: 048
     Dates: start: 20071129

REACTIONS (4)
  - BODY TEMPERATURE INCREASED [None]
  - MYDRIASIS [None]
  - SOMNOLENCE [None]
  - VOMITING [None]
